FAERS Safety Report 16365601 (Version 1)
Quarter: 2019Q2

REPORT INFORMATION
  Report Type: Spontaneous
  Country: GB (occurrence: GB)
  Receive Date: 20190529
  Receipt Date: 20190529
  Transmission Date: 20190711
  Serious: Yes (Hospitalization)
  Sender: FDA-Public Use
  Company Number: GB-ACCORD-129956

PATIENT
  Age: 76 Year
  Sex: Female

DRUGS (7)
  1. METFORMIN [Concomitant]
     Active Substance: METFORMIN HYDROCHLORIDE
  2. RAMIPRIL. [Concomitant]
     Active Substance: RAMIPRIL
  3. ATORVASTATIN [Concomitant]
     Active Substance: ATORVASTATIN
  4. FOLIC ACID. [Concomitant]
     Active Substance: FOLIC ACID
  5. CYANOCOBALAMIN. [Concomitant]
     Active Substance: CYANOCOBALAMIN
  6. METHOTREXATE. [Suspect]
     Active Substance: METHOTREXATE
     Indication: RHEUMATOID ARTHRITIS
     Route: 048
     Dates: start: 201902, end: 201903
  7. OMEPRAZOLE. [Concomitant]
     Active Substance: OMEPRAZOLE

REACTIONS (3)
  - Mucosal inflammation [Recovered/Resolved]
  - Thrombocytopenia [Recovered/Resolved]
  - Pancytopenia [Recovered/Resolved]
